FAERS Safety Report 26117581 (Version 1)
Quarter: 2025Q4

REPORT INFORMATION
  Report Type: Spontaneous
  Country: AU (occurrence: AU)
  Receive Date: 20251203
  Receipt Date: 20251203
  Transmission Date: 20260118
  Serious: Yes (Other)
  Sender: ROCHE
  Company Number: AU-BoehringerIngelheim-2025-BI-110153

PATIENT
  Age: 88 Year
  Sex: Female

DRUGS (1)
  1. METALYSE [Suspect]
     Active Substance: TENECTEPLASE
     Indication: Product used for unknown indication
     Route: 065

REACTIONS (1)
  - Seizure [Recovered/Resolved]
